FAERS Safety Report 9532307 (Version 2)
Quarter: 2013Q3

REPORT INFORMATION
  Report Type: Spontaneous
  Country: US (occurrence: US)
  Receive Date: 20130918
  Receipt Date: 20130918
  Transmission Date: 20140515
  Serious: Yes (Hospitalization)
  Sender: FDA-Public Use
  Company Number: PHEH2013US016970

PATIENT
  Sex: Male

DRUGS (7)
  1. CLOZARIL [Suspect]
     Dosage: 100 MG, BID
     Dates: start: 1998
  2. CLOZARIL [Suspect]
     Dosage: 300 MG, QHS
  3. CLOZARIL [Suspect]
     Dosage: UNK UKN, UNK
     Dates: start: 20130730
  4. NEURONTIN [Concomitant]
     Dosage: UNK UKN, UNK
  5. IBUPROFEN [Concomitant]
     Dosage: UNK UKN, UNK
  6. OMEPRAZOLE [Concomitant]
     Dosage: UNK UKN, UNK
  7. COGENTIN [Concomitant]
     Dosage: UNK UKN, UNK

REACTIONS (1)
  - Aggression [Unknown]
